FAERS Safety Report 10514098 (Version 1)
Quarter: 2014Q4

REPORT INFORMATION
  Report Type: Spontaneous
  Country: US (occurrence: US)
  Receive Date: 20141013
  Receipt Date: 20141013
  Transmission Date: 20150528
  Serious: Yes (Hospitalization)
  Sender: FDA-Public Use
  Company Number: US-PFIZER INC-2014280251

PATIENT
  Age: 83 Year
  Sex: Female
  Weight: 52.15 kg

DRUGS (2)
  1. RISPERIDONE. [Concomitant]
     Active Substance: RISPERIDONE
     Dosage: UNK
  2. XELJANZ [Suspect]
     Active Substance: TOFACITINIB CITRATE
     Indication: ARTHRITIS
     Dosage: 5 MG, 2X/DAY (AM AND PM)
     Dates: start: 201406, end: 20140926

REACTIONS (2)
  - Hallucination, auditory [Recovering/Resolving]
  - Delusion [Recovered/Resolved]

NARRATIVE: CASE EVENT DATE: 201409
